FAERS Safety Report 5839263-4 (Version None)
Quarter: 2008Q3

REPORT INFORMATION
  Report Type: 
  Country: None (occurrence: None)
  Receive Date: 20080808
  Receipt Date: 20080728
  Transmission Date: 20090109
  Serious: Yes (Hospitalization)
  Sender: FDA-Public Use
  Company Number: JP-PFIZER INC-2008063359

PATIENT
  Age: 74 Year
  Sex: Male

DRUGS (9)
  1. ZYVOX [Suspect]
     Indication: LUNG ABSCESS
     Dosage: DAILY DOSE:1200MG
     Route: 048
  2. CRAVIT [Concomitant]
  3. MYSLEE [Concomitant]
  4. ADONA [Concomitant]
  5. TRANSAMIN [Concomitant]
  6. ALUDROX ^WYETH^ [Concomitant]
  7. LANSOPRAZOLE [Concomitant]
  8. LOXONIN [Concomitant]
  9. HOKUNALIN [Concomitant]

REACTIONS (1)
  - HYPONATRAEMIA [None]
